FAERS Safety Report 16036611 (Version 3)
Quarter: 2019Q2

REPORT INFORMATION
  Report Type: Spontaneous
  Country: JP (occurrence: JP)
  Receive Date: 20190305
  Receipt Date: 20190621
  Transmission Date: 20190711
  Serious: Yes (Death)
  Sender: FDA-Public Use
  Company Number: JP-ROCHE-2276694

PATIENT
  Age: 23 Year
  Sex: Male

DRUGS (4)
  1. XOFLUZA [Suspect]
     Active Substance: BALOXAVIR MARBOXIL
     Indication: INFLUENZA
     Route: 048
     Dates: start: 20190222, end: 20190222
  2. CIPROXAN [CIPROFLOXACIN HYDROCHLORIDE] [Suspect]
     Active Substance: CIPROFLOXACIN HYDROCHLORIDE
     Indication: INFECTION
     Route: 065
     Dates: start: 20190222
  3. CALONAL [Suspect]
     Active Substance: ACETAMINOPHEN
     Indication: INFLUENZA
     Route: 065
     Dates: start: 20190222
  4. MUCODYNE [Suspect]
     Active Substance: CARBOCYSTEINE
     Indication: INFECTION
     Route: 065
     Dates: start: 20190222

REACTIONS (1)
  - Death [Fatal]

NARRATIVE: CASE EVENT DATE: 20190225
